FAERS Safety Report 5957695-0 (Version None)
Quarter: 2008Q4

REPORT INFORMATION
  Report Type: 
  Country: None (occurrence: None)
  Receive Date: 20081117
  Receipt Date: 20081103
  Transmission Date: 20090506
  Serious: Yes (Other)
  Sender: FDA-Public Use
  Company Number: STI-2008-03437

PATIENT
  Age: 26 Year
  Sex: Female

DRUGS (7)
  1. CLINDOXYL [Suspect]
     Dosage: ON WHOLE FACE
     Dates: start: 20081030
  2. DERMOTIVIN LIQUID BY GALDERMA [Concomitant]
  3. SUNDOWN SPF 60 BY JOHNSON + JOHNSON [Concomitant]
  4. MAKE-UP BY PAYOT + MAKE-UP BY REVLON (COSMETICS) [Concomitant]
  5. DEMAQUILANTE BIFASICO BY NATURA [Concomitant]
  6. SOAP (SOAP) [Concomitant]
  7. PROTEX SOAP (PROTEX) (SOAP) [Concomitant]

REACTIONS (9)
  - ACNE [None]
  - BURNING SENSATION [None]
  - CAUSTIC INJURY [None]
  - DEFORMITY [None]
  - ERYTHEMA [None]
  - PRURITUS [None]
  - SKIN DEPIGMENTATION [None]
  - SWELLING [None]
  - VISUAL IMPAIRMENT [None]
